FAERS Safety Report 14187671 (Version 1)
Quarter: 2017Q4

REPORT INFORMATION
  Report Type: Spontaneous
  Country: US (occurrence: US)
  Receive Date: 20171114
  Receipt Date: 20171114
  Transmission Date: 20180321
  Serious: No
  Sender: FDA-Public Use
  Company Number: US-BAUSCH-BL-2017-026506

PATIENT
  Age: 62 Year
  Sex: Female
  Weight: 53.12 kg

DRUGS (2)
  1. TRETINOIN CREAM 0.1% [Suspect]
     Active Substance: TRETINOIN
     Indication: THERAPEUTIC SKIN CARE TOPICAL
     Route: 065
     Dates: start: 201705, end: 2017
  2. TRETINOIN CREAM 0.1% [Suspect]
     Active Substance: TRETINOIN
     Dosage: APPLIED TO FACE
     Route: 061
     Dates: start: 20170902, end: 20170904

REACTIONS (2)
  - Burning sensation [Recovering/Resolving]
  - Product physical consistency issue [Unknown]

NARRATIVE: CASE EVENT DATE: 20170902
